FAERS Safety Report 24179921 (Version 1)
Quarter: 2024Q3

REPORT INFORMATION
  Report Type: Spontaneous
  Country: US (occurrence: US)
  Receive Date: 20240806
  Receipt Date: 20240806
  Transmission Date: 20241016
  Serious: Yes (Death, Other)
  Sender: ABBVIE
  Company Number: US-ABBVIE-5824265

PATIENT
  Age: 49 Year
  Sex: Male
  Weight: 73 kg

DRUGS (19)
  1. EPCORITAMAB [Suspect]
     Active Substance: EPCORITAMAB
     Indication: Diffuse large B-cell lymphoma
     Route: 058
     Dates: start: 20240611, end: 20240611
  2. EPCORITAMAB [Suspect]
     Active Substance: EPCORITAMAB
     Indication: Diffuse large B-cell lymphoma
     Route: 058
     Dates: start: 20240618, end: 20240618
  3. GRANIX [Concomitant]
     Active Substance: TBO-FILGRASTIM
     Indication: Product used for unknown indication
     Dates: start: 20240624
  4. ACYCLOVIR [Concomitant]
     Active Substance: ACYCLOVIR
     Indication: Product used for unknown indication
     Dates: end: 20240624
  5. MICAFUNGIN [Concomitant]
     Active Substance: MICAFUNGIN SODIUM
     Indication: Product used for unknown indication
     Dates: start: 20240624
  6. CEFEPIME [Concomitant]
     Active Substance: CEFEPIME HYDROCHLORIDE
     Indication: Product used for unknown indication
     Dates: start: 20240624
  7. MEROPENEM [Concomitant]
     Active Substance: MEROPENEM
     Indication: Product used for unknown indication
     Dates: start: 20240624, end: 20240624
  8. VANCOMYCIN [Concomitant]
     Active Substance: VANCOMYCIN
     Indication: Product used for unknown indication
     Dates: start: 20240624, end: 20240624
  9. FUROSEMIDE [Concomitant]
     Active Substance: FUROSEMIDE
     Indication: Product used for unknown indication
     Dates: start: 20240624, end: 20240624
  10. SODIUM CHLORIDE [Concomitant]
     Active Substance: SODIUM CHLORIDE
     Indication: Product used for unknown indication
     Dates: end: 20240624
  11. METOPROLOL [Concomitant]
     Active Substance: METOPROLOL
     Indication: Product used for unknown indication
     Dates: end: 20240624
  12. LISINOPRIL [Concomitant]
     Active Substance: LISINOPRIL
     Indication: Product used for unknown indication
     Dates: start: 20240624
  13. PANTOPRAZOLE [Concomitant]
     Active Substance: PANTOPRAZOLE
     Indication: Product used for unknown indication
     Dates: end: 20240624
  14. DESFERAL [Concomitant]
     Active Substance: DEFEROXAMINE MESYLATE
     Indication: Product used for unknown indication
     Dates: end: 20240622
  15. CALCIUM GLUCONATE [Concomitant]
     Active Substance: CALCIUM GLUCONATE
     Indication: Product used for unknown indication
     Dates: end: 20240616
  16. MAGNESIUM [Concomitant]
     Active Substance: MAGNESIUM
     Indication: Product used for unknown indication
     Dates: end: 20240624
  17. SODIUM PHOSPHATES [Concomitant]
     Active Substance: SODIUM PHOSPHATE, DIBASIC, ANHYDROUS\SODIUM PHOSPHATE, MONOBASIC, MONOHYDRATE
     Indication: Product used for unknown indication
     Dates: end: 20240624
  18. MICRO K [Concomitant]
     Indication: Product used for unknown indication
     Dates: end: 20240624
  19. LEVOTHYROXINE [Suspect]
     Active Substance: LEVOTHYROXINE\LEVOTHYROXINE SODIUM
     Indication: Product used for unknown indication
     Route: 048
     Dates: end: 20240624

REACTIONS (6)
  - Haemorrhage intracranial [Fatal]
  - Pyrexia [Unknown]
  - Inappropriate schedule of product administration [Unknown]
  - Serum ferritin increased [Unknown]
  - Cytokine release syndrome [Unknown]
  - Blood fibrinogen decreased [Unknown]
